FAERS Safety Report 21634809 (Version 13)
Quarter: 2023Q2

REPORT INFORMATION
  Report Type: Report from Study
  Country: GB (occurrence: None)
  Receive Date: 20221123
  Receipt Date: 20230426
  Transmission Date: 20230722
  Serious: Yes (Hospitalization, Other)
  Sender: FDA-Public Use
  Company Number: GB-ROCHE-3221639

PATIENT
  Age: 66 Year
  Sex: Male
  Weight: 112.9 kg

DRUGS (22)
  1. RITUXIMAB [Suspect]
     Active Substance: RITUXIMAB
     Indication: Non-Hodgkin^s lymphoma
     Dosage: ON 09/NOV/2022 FROM 10:01 AM TO 3:28 PM, HE RECEIVED MOST RECENT DOSE OF RITUXIMAB AT 900 MG PRIOR T
     Route: 041
     Dates: start: 20221109
  2. LENALIDOMIDE [Suspect]
     Active Substance: LENALIDOMIDE
     Indication: Non-Hodgkin^s lymphoma
     Dosage: ON 15/NOV/2022 AT 9:00 AM, HE RECEIVED MOST RECENT DOSE OF LENALIDOMIDE AT 20 MG PRIOR TO EVENT ONSE
     Route: 048
     Dates: start: 20221109
  3. METFORMIN HYDROCHLORIDE [Concomitant]
     Active Substance: METFORMIN HYDROCHLORIDE
     Indication: Type 2 diabetes mellitus
     Route: 048
     Dates: start: 20210420
  4. ACETAMINOPHEN [Concomitant]
     Active Substance: ACETAMINOPHEN
     Indication: Premedication
     Route: 048
     Dates: start: 20221109, end: 20221123
  5. ACETAMINOPHEN [Concomitant]
     Active Substance: ACETAMINOPHEN
     Indication: Pain
     Route: 048
     Dates: start: 20221119, end: 20221121
  6. HYDROCORTISONE [Concomitant]
     Active Substance: HYDROCORTISONE
     Indication: Premedication
     Route: 042
     Dates: start: 20221109, end: 20221123
  7. CHLORPHENIRAMINE MALEATE [Concomitant]
     Active Substance: CHLORPHENIRAMINE MALEATE
     Indication: Hypercalcaemia
     Route: 042
     Dates: start: 20221109, end: 20221123
  8. CHLORPHENIRAMINE MALEATE [Concomitant]
     Active Substance: CHLORPHENIRAMINE MALEATE
     Route: 042
     Dates: start: 20221116, end: 20221120
  9. ACYCLOVIR [Concomitant]
     Active Substance: ACYCLOVIR
     Route: 048
     Dates: start: 20221109
  10. DOMPERIDONE [Concomitant]
     Active Substance: DOMPERIDONE
     Route: 048
     Dates: start: 20221109
  11. ALLOPURINOL [Concomitant]
     Active Substance: ALLOPURINOL
     Dosage: TUMOUR LYSIS PREVENTION
     Route: 048
     Dates: start: 20221109
  12. CODEINE [Concomitant]
     Active Substance: CODEINE
     Indication: Headache
     Route: 048
     Dates: start: 20221109, end: 20221109
  13. SODIUM CHLORIDE [Concomitant]
     Active Substance: SODIUM CHLORIDE
     Indication: Blood magnesium decreased
     Route: 042
     Dates: start: 20221116, end: 20221116
  14. SODIUM CHLORIDE [Concomitant]
     Active Substance: SODIUM CHLORIDE
     Indication: Blood potassium decreased
     Route: 042
     Dates: start: 20221117, end: 20221117
  15. MAGNESIUM SULFATE [Concomitant]
     Active Substance: MAGNESIUM SULFATE
     Indication: Blood magnesium decreased
     Route: 042
     Dates: start: 20221116, end: 20221116
  16. DEXTROSE [Concomitant]
     Active Substance: DEXTROSE\DEXTROSE MONOHYDRATE
     Indication: Fluid replacement
     Route: 042
     Dates: start: 20221117, end: 20221118
  17. POTASSIUM CHLORIDE [Concomitant]
     Active Substance: POTASSIUM CHLORIDE
     Indication: Blood potassium decreased
     Route: 042
     Dates: start: 20221117, end: 20221117
  18. CALCIUM CHLORIDE\POTASSIUM CHLORIDE\SODIUM CHLORIDE\SODIUM LACTATE [Concomitant]
     Active Substance: CALCIUM CHLORIDE\POTASSIUM CHLORIDE\SODIUM CHLORIDE\SODIUM LACTATE
     Indication: Fluid replacement
     Route: 042
     Dates: start: 20221120, end: 20221120
  19. POTASSIUM CHLORIDE\SODIUM CHLORIDE [Concomitant]
     Active Substance: POTASSIUM CHLORIDE\SODIUM CHLORIDE
     Indication: Blood potassium decreased
     Route: 042
     Dates: start: 20221117, end: 20221117
  20. POLYETHYLENE GLYCOL 3350\POTASSIUM CHLORIDE\SODIUM BICARBONATE\SODIUM [Concomitant]
     Active Substance: POLYETHYLENE GLYCOL 3350\POTASSIUM CHLORIDE\SODIUM BICARBONATE\SODIUM CHLORIDE
     Indication: Constipation
     Route: 048
     Dates: end: 202211
  21. PIPERACILLIN SODIUM\TAZOBACTAM SODIUM [Concomitant]
     Active Substance: PIPERACILLIN SODIUM\TAZOBACTAM SODIUM
     Indication: Infection
     Route: 042
     Dates: start: 20221123, end: 20221127
  22. GENTAMICIN [Concomitant]
     Active Substance: GENTAMICIN
     Indication: Infection
     Route: 042
     Dates: start: 20221123, end: 20221123

REACTIONS (2)
  - Hypercalcaemia [Recovered/Resolved]
  - Neutropenia [Recovered/Resolved]

NARRATIVE: CASE EVENT DATE: 20221116
